FAERS Safety Report 8456616-9 (Version None)
Quarter: 2012Q2

REPORT INFORMATION
  Report Type: 
  Country: None (occurrence: None)
  Receive Date: 20120621
  Receipt Date: 20120613
  Transmission Date: 20120825
  Serious: Yes (Other)
  Sender: FDA-Public Use
  Company Number: US-US-EMD SERONO, INC.-7140499

PATIENT
  Sex: Female

DRUGS (1)
  1. SEROPHENE [Suspect]
     Indication: INFERTILITY
     Route: 048
     Dates: start: 20050101, end: 20050101

REACTIONS (3)
  - BREAST CANCER STAGE III [None]
  - OESTROGEN RECEPTOR ASSAY POSITIVE [None]
  - DRUG INEFFECTIVE [None]
